FAERS Safety Report 22113838 (Version 1)
Quarter: 2023Q1

REPORT INFORMATION
  Report Type: Spontaneous
  Country: US (occurrence: None)
  Receive Date: 20230318
  Receipt Date: 20230318
  Transmission Date: 20230417
  Serious: No
  Sender: FDA-Public Use
  Company Number: None

PATIENT
  Age: 50 Year
  Sex: Female
  Weight: 111.6 kg

DRUGS (4)
  1. LAGEVRIO [Suspect]
     Active Substance: MOLNUPIRAVIR
     Indication: COVID-19
     Dosage: 40 CAPSULES TWICE A DAY ORAL?
     Route: 048
     Dates: start: 20230313, end: 20230315
  2. Venaflexine [Concomitant]
  3. ZINC [Concomitant]
     Active Substance: ZINC
  4. VITAMINS [Concomitant]
     Active Substance: VITAMINS

REACTIONS (6)
  - Pruritus [None]
  - Rash [None]
  - Skin haemorrhage [None]
  - Scratch [None]
  - Middle insomnia [None]
  - Perineal rash [None]

NARRATIVE: CASE EVENT DATE: 20230314
